FAERS Safety Report 23563886 (Version 1)
Quarter: 2024Q1

REPORT INFORMATION
  Report Type: Spontaneous
  Country: BR (occurrence: BR)
  Receive Date: 20240226
  Receipt Date: 20240226
  Transmission Date: 20240409
  Serious: Yes (Hospitalization, Other)
  Sender: FDA-Public Use
  Company Number: BR-RDY-SPO/BRA/24/0003010

PATIENT
  Age: 74 Year
  Sex: Male
  Weight: 77 kg

DRUGS (6)
  1. AZACITIDINE [Suspect]
     Active Substance: AZACITIDINE
     Indication: Myelodysplastic syndrome
     Dosage: CYCLICAL (EVERY 28 DAYS 400 CYCLES)
     Route: 058
  2. REBLOZYL [Suspect]
     Active Substance: LUSPATERCEPT-AAMT
     Indication: Product used for unknown indication
     Dosage: EVERY 21 DAYS
  3. PIPERACILLIN SODIUM\TAZOBACTAM SODIUM [Concomitant]
     Active Substance: PIPERACILLIN SODIUM\TAZOBACTAM SODIUM
     Indication: Cough
  4. FILGRASTIM [Concomitant]
     Active Substance: FILGRASTIM
     Indication: Cough
  5. DIPYRONE [Concomitant]
     Active Substance: DIPYRONE
     Indication: Cough
  6. VIBRAL [DROPROPIZINE] [Concomitant]
     Indication: Cough

REACTIONS (4)
  - Febrile neutropenia [Recovering/Resolving]
  - Dyspnoea [Recovering/Resolving]
  - Pleural effusion [Unknown]
  - Atelectasis [Unknown]

NARRATIVE: CASE EVENT DATE: 20240102
